FAERS Safety Report 14495198 (Version 11)
Quarter: 2018Q4

REPORT INFORMATION
  Report Type: Spontaneous
  Country: US (occurrence: US)
  Receive Date: 20180206
  Receipt Date: 20181228
  Transmission Date: 20190204
  Serious: Yes (Hospitalization)
  Sender: FDA-Public Use
  Company Number: US-ACTELION-A-NJ2018-167272

PATIENT
  Age: 49 Year
  Sex: Female
  Weight: 104.31 kg

DRUGS (2)
  1. REMODULIN [Concomitant]
     Active Substance: TREPROSTINIL
     Dosage: 107.5 NG/KG, PER MIN
     Route: 042
     Dates: end: 20180814
  2. OPSUMIT [Suspect]
     Active Substance: MACITENTAN
     Indication: PULMONARY ARTERIAL HYPERTENSION
     Dosage: 10 MG, QD
     Route: 048
     Dates: start: 20151216

REACTIONS (14)
  - Haemoglobin decreased [Recovering/Resolving]
  - Transfusion [Recovering/Resolving]
  - Pleural effusion [Unknown]
  - Flushing [Unknown]
  - Respiratory failure [Recovered/Resolved]
  - Condition aggravated [Unknown]
  - Catheter site pain [Unknown]
  - Adverse event [Unknown]
  - Infusion site infection [Recovered/Resolved]
  - Humidity intolerance [Unknown]
  - Cough [Unknown]
  - Abdominal discomfort [Unknown]
  - Weight increased [Unknown]
  - Dyspnoea [Recovered/Resolved]

NARRATIVE: CASE EVENT DATE: 20180129
